FAERS Safety Report 7406333-9 (Version None)
Quarter: 2011Q2

REPORT INFORMATION
  Report Type: 
  Country: None (occurrence: None)
  Receive Date: 20110411
  Receipt Date: 20110328
  Transmission Date: 20111010
  Serious: Yes (Other)
  Sender: FDA-Public Use
  Company Number: GB-JNJFOC-20101200262

PATIENT
  Sex: Female

DRUGS (4)
  1. ASACOL [Concomitant]
     Route: 065
  2. AZATHIOPRINE [Concomitant]
     Route: 065
  3. BUSCOPAN [Concomitant]
     Route: 065
  4. REMICADE [Suspect]
     Indication: PRODUCT USED FOR UNKNOWN INDICATION
     Dosage: 3 INFUSIONS; ON THERAPY FOR 6 MONTHS.
     Route: 042

REACTIONS (2)
  - ARTHRITIS [None]
  - GAIT DISTURBANCE [None]
